FAERS Safety Report 6051768-2 (Version None)
Quarter: 2009Q1

REPORT INFORMATION
  Report Type: 
  Country: None (occurrence: None)
  Receive Date: 20090126
  Receipt Date: 20090114
  Transmission Date: 20090719
  Serious: Yes (Other)
  Sender: FDA-Public Use
  Company Number: JP-PFIZER INC-2008100748

PATIENT
  Age: 14 Year
  Sex: Female

DRUGS (11)
  1. ZITHROMAX [Suspect]
     Indication: BRONCHITIS
     Dosage: 500 MG, 1X/DAY
     Route: 048
     Dates: start: 20081029, end: 20081029
  2. ZITHROMAX [Suspect]
     Indication: PHARYNGITIS
  3. DALACIN [Suspect]
     Indication: BRONCHITIS
     Dosage: 600 MG, 1X/DAY
     Route: 042
     Dates: start: 20081029, end: 20081029
  4. DALACIN [Suspect]
     Indication: PHARYNGITIS
  5. BROCIN [Suspect]
     Dosage: 6 ML, 3X/DAY
     Route: 048
     Dates: start: 20081029, end: 20081029
  6. SENEGA [Suspect]
     Dosage: 14 ML, 3X/DAY
     Route: 048
     Dates: start: 20081029, end: 20081029
  7. MUCODYNE [Concomitant]
     Dosage: UNK
     Route: 048
     Dates: start: 20081029, end: 20081029
  8. MEPTIN [Concomitant]
     Route: 048
     Dates: start: 20081029, end: 20081029
  9. AZELASTINE [Concomitant]
     Route: 048
     Dates: start: 20081029, end: 20081029
  10. DIHYDROCODEINE PHOSPHATE [Concomitant]
  11. SAXIZON [Concomitant]
     Dosage: UNK
     Route: 042
     Dates: start: 20081029, end: 20081029

REACTIONS (4)
  - BRONCHIAL OEDEMA [None]
  - MALAISE [None]
  - RASH [None]
  - UPPER RESPIRATORY TRACT INFLAMMATION [None]
